FAERS Safety Report 8917292 (Version 2)
Quarter: 2013Q4

REPORT INFORMATION
  Report Type: Spontaneous
  Country: DE (occurrence: DE)
  Receive Date: 20121119
  Receipt Date: 20131203
  Transmission Date: 20140711
  Serious: Yes (Death)
  Sender: FDA-Public Use
  Company Number: DE-MYLANLABS-2012S1023204

PATIENT
  Age: 52 Year
  Sex: Female

DRUGS (12)
  1. AMLODIPINE [Suspect]
     Dosage: 2.5MG ON D1; THEN 7.5MG
     Route: 065
  2. AMLODIPINE [Interacting]
     Dosage: 7.5MG ON D2; THEN 10MG
     Route: 065
  3. AMLODIPINE [Interacting]
     Dosage: 10MG ON D3
     Route: 065
  4. DOXEPIN [Interacting]
     Dosage: 25MG DAILY, INCREASED TO 100MG DAILY 13D BEFORE DEATH
     Route: 065
  5. DOXEPIN [Interacting]
     Dosage: 100MG DAILY; INCREASED TO 125MG DAILY 8D BEFORE DEATH
     Route: 065
  6. DOXEPIN [Interacting]
     Dosage: 125MG DAILY
     Route: 065
  7. PROTHIPENDYL [Interacting]
     Dosage: DOUBLE DOSE IN EVENING ON 3 OUT OF 5D BEFORE DEATH
     Route: 065
  8. OLANZAPINE [Concomitant]
     Route: 065
  9. TILIDINE [Concomitant]
     Route: 065
  10. DIAZEPAM [Concomitant]
     Route: 065
  11. METOPROLOL [Concomitant]
     Route: 065
  12. IBUPROFEN [Concomitant]
     Route: 065

REACTIONS (4)
  - Toxicity to various agents [Fatal]
  - Drug interaction [Fatal]
  - Somnolence [Not Recovered/Not Resolved]
  - Salivary hypersecretion [Not Recovered/Not Resolved]
